FAERS Safety Report 9221125 (Version 1)
Quarter: 2013Q2

REPORT INFORMATION
  Report Type: Spontaneous
  Country: BE (occurrence: BE)
  Receive Date: 20130409
  Receipt Date: 20130409
  Transmission Date: 20140414
  Serious: Yes (Other)
  Sender: FDA-Public Use
  Company Number: BE-AMGEN-BELSP2013024087

PATIENT
  Age: 46 Year
  Sex: Male

DRUGS (3)
  1. NEULASTA [Suspect]
     Indication: PRODUCT USED FOR UNKNOWN INDICATION
     Dosage: UNK
  2. ARA-C [Concomitant]
     Dosage: UNK
     Dates: start: 20130128
  3. DAUNORUBICIN [Concomitant]
     Dosage: UNK
     Dates: start: 20130128

REACTIONS (1)
  - Acute febrile neutrophilic dermatosis [Not Recovered/Not Resolved]
